FAERS Safety Report 17976595 (Version 3)
Quarter: 2020Q3

REPORT INFORMATION
  Report Type: Spontaneous
  Country: JP (occurrence: JP)
  Receive Date: 20200703
  Receipt Date: 20200728
  Transmission Date: 20201103
  Serious: Yes (Other)
  Sender: FDA-Public Use
  Company Number: JP-ROCHE-2635735

PATIENT
  Age: 79 Year
  Sex: Female

DRUGS (1)
  1. ACTEMRA [Suspect]
     Active Substance: TOCILIZUMAB
     Indication: RHEUMATOID ARTHRITIS
     Dosage: DOSAGE IS UNCERTAIN.
     Route: 058
     Dates: start: 2018

REACTIONS (3)
  - Sepsis [Recovered/Resolved]
  - Disseminated intravascular coagulation [Unknown]
  - Haemophagocytic lymphohistiocytosis [Unknown]

NARRATIVE: CASE EVENT DATE: 20200706
